FAERS Safety Report 6701225-2 (Version None)
Quarter: 2010Q2

REPORT INFORMATION
  Report Type: 
  Country: None (occurrence: None)
  Receive Date: 20100427
  Receipt Date: 20100415
  Transmission Date: 20101027
  Serious: Yes (Hospitalization)
  Sender: FDA-Public Use
  Company Number: DSM-2009-00051

PATIENT
  Age: 63 Year
  Sex: Male

DRUGS (2)
  1. OLMESARTAN MEDOXOMIL [Suspect]
     Indication: HYPERTENSION
     Dosage: 20 MG (20 MG, 1 IN 1 D), ORAL
     Route: 048
     Dates: start: 20050101, end: 20080421
  2. SIMVASTATIN [Suspect]
     Indication: HYPERTENSION
     Dosage: 20 MG (20 MG, 1 IN 1 D), ORAL
     Route: 048
     Dates: start: 19950101, end: 20080421

REACTIONS (5)
  - CHILLS [None]
  - HEADACHE [None]
  - HEPATITIS ACUTE [None]
  - PAIN IN EXTREMITY [None]
  - WEIGHT DECREASED [None]
